FAERS Safety Report 15717138 (Version 1)
Quarter: 2018Q4

REPORT INFORMATION
  Report Type: Spontaneous
  Country: FR (occurrence: FR)
  Receive Date: 20181213
  Receipt Date: 20181213
  Transmission Date: 20190205
  Serious: Yes (Other)
  Sender: FDA-Public Use
  Company Number: FR-AUROBINDO-AUR-APL-2018-059511

PATIENT
  Age: 70 Year
  Sex: Female
  Weight: 90 kg

DRUGS (2)
  1. VENLAFAXINE [Suspect]
     Active Substance: VENLAFAXINE HYDROCHLORIDE
     Indication: BIPOLAR I DISORDER
     Dosage: 37.5 MILLIGRAM, ONCE A DAY
     Route: 048
     Dates: start: 20181107, end: 20181112
  2. OLANZAPINE MYLAN [Suspect]
     Active Substance: OLANZAPINE
     Indication: BIPOLAR I DISORDER
     Dosage: 5 MILLIGRAM, ONCE A DAY
     Route: 048
     Dates: start: 20181107, end: 20181111

REACTIONS (1)
  - Thrombocytopenia [Recovering/Resolving]

NARRATIVE: CASE EVENT DATE: 20181109
